FAERS Safety Report 10032957 (Version 1)
Quarter: 2014Q1

REPORT INFORMATION
  Report Type: Spontaneous
  Country: US (occurrence: US)
  Receive Date: 20140324
  Receipt Date: 20140324
  Transmission Date: 20141002
  Serious: Yes (Hospitalization)
  Sender: FDA-Public Use
  Company Number: US-ELI_LILLY_AND_COMPANY-US201310010452

PATIENT
  Sex: Male

DRUGS (1)
  1. CYMBALTA [Suspect]
     Indication: PAIN
     Dosage: UNK, UNKNOWN
     Route: 065

REACTIONS (6)
  - Panic attack [Unknown]
  - Neuropathy peripheral [Unknown]
  - Nightmare [Unknown]
  - Aggression [Unknown]
  - Paraesthesia [Unknown]
  - Drug withdrawal syndrome [Unknown]
